FAERS Safety Report 5236533-8 (Version None)
Quarter: 2007Q1

REPORT INFORMATION
  Report Type: 
  Country: None (occurrence: None)
  Receive Date: 20070206
  Receipt Date: 20070126
  Transmission Date: 20070707
  Serious: No
  Sender: FDA-Public Use
  Company Number: 2007-153292-NL

PATIENT
  Age: 35 Year
  Sex: Female

DRUGS (1)
  1. ETONOGESTREL     (BATCH #: 367209/535321) [Suspect]
     Indication: CONTRACEPTION
     Dosage: DF
     Dates: start: 20031119, end: 20061109

REACTIONS (5)
  - AMENORRHOEA [None]
  - COMPLICATION OF DEVICE REMOVAL [None]
  - DEVICE MIGRATION [None]
  - HAEMATOMA [None]
  - MEDIAN NERVE LESION [None]
